FAERS Safety Report 4896650-9 (Version None)
Quarter: 2005Q4

REPORT INFORMATION
  Report Type: 
  Country: None (occurrence: None)
  Receive Date: 20051223
  Receipt Date: 20050901
  Transmission Date: 20060501
  Serious: No
  Sender: FDA-Public Use
  Company Number: 05P-163-0310103-00

PATIENT
  Age: 79 Year
  Sex: Female
  Weight: 57.1532 kg

DRUGS (7)
  1. HUMIRA [Suspect]
     Indication: RHEUMATOID ARTHRITIS
     Dosage: 40 MG, 1 IN 1 D, SUBCUTANEOUS
     Route: 059
     Dates: start: 20050608, end: 20050830
  2. CEPHALEXIN [Concomitant]
  3. PREDNISONE [Concomitant]
  4. ROSIGLITAZONE MALEATE [Concomitant]
  5. GLIPIZIDE [Concomitant]
  6. ISONIAZID [Concomitant]
  7. ATORVASTATIN CALCIUM [Concomitant]

REACTIONS (2)
  - HYPERKERATOSIS [None]
  - SKIN LACERATION [None]
